FAERS Safety Report 9922128 (Version 2)
Quarter: 2014Q2

REPORT INFORMATION
  Report Type: Report from Study
  Country: CA (occurrence: CA)
  Receive Date: 20140225
  Receipt Date: 20140501
  Transmission Date: 20141212
  Serious: Yes (Hospitalization, Other)
  Sender: FDA-Public Use
  Company Number: CA-SA-2014SA022122

PATIENT
  Age: 59 Year
  Sex: Male
  Weight: 98.3 kg

DRUGS (2)
  1. PLERIXAFOR [Suspect]
     Indication: HAEMATOPOIETIC STEM CELL MOBILISATION
     Route: 058
     Dates: start: 20140128, end: 20140128
  2. GRANULOCYTE COLONY-STIMULATING FACTOR NOS [Concomitant]
     Indication: HAEMATOPOIETIC STEM CELL MOBILISATION
     Route: 058
     Dates: start: 20140125, end: 20140128

REACTIONS (1)
  - Deafness [Recovering/Resolving]
